FAERS Safety Report 18517716 (Version 1)
Quarter: 2020Q4

REPORT INFORMATION
  Report Type: Spontaneous
  Country: US (occurrence: US)
  Receive Date: 20201118
  Receipt Date: 20201118
  Transmission Date: 20210114
  Serious: Yes (Death, Other)
  Sender: FDA-Public Use
  Company Number: US-UNITED THERAPEUTICS-UNT-2020-017920

PATIENT
  Age: 44 Year
  Sex: Female

DRUGS (9)
  1. NOREPINEPHRINE. [Concomitant]
     Active Substance: NOREPINEPHRINE
     Indication: RIGHT VENTRICULAR FAILURE
     Dosage: UNK
     Route: 065
     Dates: start: 2019
  2. REMODULIN [Suspect]
     Active Substance: TREPROSTINIL
     Indication: PULMONARY ARTERIAL HYPERTENSION
     Dosage: UNK, CONTINUING
     Route: 041
     Dates: start: 2019
  3. SILDENAFIL. [Concomitant]
     Active Substance: SILDENAFIL
     Indication: PULMONARY ARTERIAL HYPERTENSION
     Dosage: UNK
     Route: 065
     Dates: start: 2019
  4. OXYGEN. [Concomitant]
     Active Substance: OXYGEN
     Indication: RESPIRATORY FAILURE
     Dosage: UNK
     Route: 065
     Dates: start: 2019
  5. PREDNISONE. [Concomitant]
     Active Substance: PREDNISONE
     Indication: SJOGREN^S SYNDROME
  6. HYDROXYCHLOROQUINE [Concomitant]
     Active Substance: HYDROXYCHLOROQUINE
     Indication: SYSTEMIC LUPUS ERYTHEMATOSUS
     Dosage: UNK
     Route: 065
  7. HYDROXYCHLOROQUINE [Concomitant]
     Active Substance: HYDROXYCHLOROQUINE
     Indication: SJOGREN^S SYNDROME
  8. FUROSEMIDE. [Concomitant]
     Active Substance: FUROSEMIDE
     Indication: RIGHT VENTRICULAR FAILURE
     Dosage: UNK
     Route: 065
     Dates: start: 2019
  9. PREDNISONE. [Concomitant]
     Active Substance: PREDNISONE
     Indication: SYSTEMIC LUPUS ERYTHEMATOSUS
     Route: 065

REACTIONS (2)
  - Cardiogenic shock [Fatal]
  - Right ventricular failure [Fatal]

NARRATIVE: CASE EVENT DATE: 2019
